FAERS Safety Report 9016054 (Version 3)
Quarter: 2013Q1

REPORT INFORMATION
  Report Type: Spontaneous
  Country: FI (occurrence: FI)
  Receive Date: 20130116
  Receipt Date: 20130326
  Transmission Date: 20140127
  Serious: Yes (Hospitalization)
  Sender: FDA-Public Use
  Company Number: FI-B.I. PHARMACEUTICALS,INC./RIDGEFIELD-2013-SW-00011SF

PATIENT
  Age: 81 Year
  Sex: Female

DRUGS (11)
  1. PRADAXA [Suspect]
     Indication: ATRIAL FIBRILLATION
     Dosage: 220 MG
     Dates: start: 201206, end: 20121119
  2. DIFORMIN RETARD [Concomitant]
     Dosage: 2000 MG
  3. AMARYL [Concomitant]
     Dosage: 1 MG
  4. KALCIPOS-D [Concomitant]
     Dosage: STRENGTH: 500MG/400IU TWICE DAILY
  5. VESIX [Concomitant]
     Dosage: 40 MG
  6. ZOCOR [Concomitant]
     Dosage: 20 MG
  7. SERETIDE EVOHALER [Concomitant]
     Dosage: STRENGTH: 25MG/250 MCG, 2 PUFFS TWICE DAILY
  8. SPIRIVA [Concomitant]
     Dosage: 5 MCG
  9. VENTOLINE EVOHALER [Concomitant]
  10. PANADOL FORTE [Concomitant]
  11. TENOX [Concomitant]

REACTIONS (10)
  - Local swelling [Not Recovered/Not Resolved]
  - Blood blister [Not Recovered/Not Resolved]
  - Feeling hot [Unknown]
  - Pulse pressure decreased [Unknown]
  - Tenderness [Not Recovered/Not Resolved]
  - Wound necrosis [Not Recovered/Not Resolved]
  - Lividity [Not Recovered/Not Resolved]
  - Leukocytoclastic vasculitis [Not Recovered/Not Resolved]
  - Wound complication [Not Recovered/Not Resolved]
  - Pneumonia [Unknown]
